FAERS Safety Report 19998041 (Version 1)
Quarter: 2021Q4

REPORT INFORMATION
  Report Type: Spontaneous
  Country: CN (occurrence: CN)
  Receive Date: 20211026
  Receipt Date: 20211026
  Transmission Date: 20220303
  Serious: Yes (Life-Threatening, Other)
  Sender: FDA-Public Use
  Company Number: CN-009507513-2110CHN006162

PATIENT
  Age: 48 Year
  Sex: Female

DRUGS (1)
  1. CILASTATIN SODIUM\IMIPENEM [Suspect]
     Active Substance: CILASTATIN SODIUM\IMIPENEM
     Indication: Anti-infective therapy
     Dosage: 500 MG, Q8H
     Route: 041
     Dates: start: 20210919, end: 20210921

REACTIONS (4)
  - Epilepsy [Recovered/Resolved]
  - Metastases to central nervous system [Unknown]
  - Cerebrovascular accident [Unknown]
  - Metabolic encephalopathy [Unknown]

NARRATIVE: CASE EVENT DATE: 20210921
